FAERS Safety Report 21108466 (Version 1)
Quarter: 2022Q3

REPORT INFORMATION
  Report Type: Spontaneous
  Country: US (occurrence: US)
  Receive Date: 20220721
  Receipt Date: 20220721
  Transmission Date: 20221026
  Serious: No
  Sender: FDA-Public Use
  Company Number: US-ORGANON-O2207USA001400

PATIENT
  Age: 19 Year
  Sex: Female
  Weight: 45.351 kg

DRUGS (1)
  1. NEXPLANON [Suspect]
     Active Substance: ETONOGESTREL
     Indication: Contraception
     Dosage: 1 ROD FOR 3 YEARS, IN RIGHT ARM
     Route: 059

REACTIONS (3)
  - Polymenorrhoea [Not Recovered/Not Resolved]
  - Hypomenorrhoea [Not Recovered/Not Resolved]
  - Vaginal haemorrhage [Not Recovered/Not Resolved]

NARRATIVE: CASE EVENT DATE: 20220628
